FAERS Safety Report 6991323-0 (Version None)
Quarter: 2010Q3

REPORT INFORMATION
  Report Type: 
  Country: None (occurrence: None)
  Receive Date: 20100916
  Receipt Date: 20090428
  Transmission Date: 20110219
  Serious: No
  Sender: FDA-Public Use
  Company Number: US-WYE-H05628108

PATIENT
  Sex: Female
  Weight: 59.02 kg

DRUGS (1)
  1. PREMARIN [Suspect]
     Indication: OESTROGEN REPLACEMENT THERAPY
     Route: 048
     Dates: start: 20060301

REACTIONS (3)
  - ALOPECIA [None]
  - DIZZINESS [None]
  - FATIGUE [None]
